FAERS Safety Report 21908371 (Version 1)
Quarter: 2023Q1

REPORT INFORMATION
  Report Type: Spontaneous
  Country: US (occurrence: US)
  Receive Date: 20230125
  Receipt Date: 20230125
  Transmission Date: 20230418
  Serious: No
  Sender: FDA-Public Use
  Company Number: US-INSUD PHARMA-2301US00307

PATIENT

DRUGS (4)
  1. CLOBETASOL [Suspect]
     Active Substance: CLOBETASOL
     Indication: Skin disorder
     Dosage: UNK
     Route: 061
  2. AMLODIPINE [Concomitant]
     Active Substance: AMLODIPINE BESYLATE
     Indication: Hypertension
  3. ATORVASTATIN CALCIUM [Concomitant]
     Active Substance: ATORVASTATIN CALCIUM
     Indication: Hypertension
  4. ASPIRIN [Concomitant]
     Active Substance: ASPIRIN

REACTIONS (3)
  - Therapeutic product effect decreased [Not Recovered/Not Resolved]
  - Poor quality product administered [Unknown]
  - Product physical consistency issue [Unknown]
